FAERS Safety Report 5476909-7 (Version None)
Quarter: 2007Q4

REPORT INFORMATION
  Report Type: 
  Country: None (occurrence: None)
  Receive Date: 20071002
  Receipt Date: 20070917
  Transmission Date: 20080405
  Serious: Yes (Hospitalization, Other)
  Sender: FDA-Public Use
  Company Number: 07-0086

PATIENT
  Age: 22 Year
  Sex: Female
  Weight: 68.0396 kg

DRUGS (1)
  1. SULFAMETHOXAZOLE/TRIMETHOPRIM 800 MG / 160 MG [Suspect]
     Indication: ACNE
     Dosage: 1 TAB PO BID
     Route: 048
     Dates: start: 20070825

REACTIONS (1)
  - HEPATITIS [None]
